FAERS Safety Report 19745642 (Version 1)
Quarter: 2021Q3

REPORT INFORMATION
  Report Type: Spontaneous
  Country: US (occurrence: US)
  Receive Date: 20210825
  Receipt Date: 20210825
  Transmission Date: 20211014
  Serious: Yes (Hospitalization)
  Sender: FDA-Public Use
  Company Number: US-EISAI MEDICAL RESEARCH-EC-2021-098244

PATIENT
  Age: 18 Year
  Sex: Female

DRUGS (6)
  1. BANZEL [Suspect]
     Active Substance: RUFINAMIDE
     Dosage: DOSE UP?TITRATED (DOSE UNKNOWN)
     Route: 048
     Dates: start: 2021, end: 2021
  2. PHENOBARBITAL. [Concomitant]
     Active Substance: PHENOBARBITAL
     Indication: MYOCLONIC EPILEPSY
     Dosage: DOSE AND FREQUENCY UNKNOWN
     Route: 048
  3. CLONAZEPAM. [Concomitant]
     Active Substance: CLONAZEPAM
     Indication: MYOCLONIC EPILEPSY
     Dosage: DOSE AND FREQUENCY UNKNOWN
     Route: 048
  4. BANZEL [Suspect]
     Active Substance: RUFINAMIDE
     Route: 048
     Dates: start: 2021, end: 2021
  5. BANZEL [Suspect]
     Active Substance: RUFINAMIDE
     Route: 048
     Dates: start: 2021
  6. BANZEL [Suspect]
     Active Substance: RUFINAMIDE
     Indication: MYOCLONIC EPILEPSY
     Route: 048
     Dates: start: 202104, end: 2021

REACTIONS (5)
  - Aggression [Not Recovered/Not Resolved]
  - Hallucination [Unknown]
  - Abnormal behaviour [Not Recovered/Not Resolved]
  - Mood swings [Unknown]
  - Alopecia [Not Recovered/Not Resolved]

NARRATIVE: CASE EVENT DATE: 2021
